FAERS Safety Report 9652079 (Version 3)
Quarter: 2013Q4

REPORT INFORMATION
  Report Type: Spontaneous
  Country: BR (occurrence: BR)
  Receive Date: 20131029
  Receipt Date: 20131115
  Transmission Date: 20140711
  Serious: Yes (Other)
  Sender: FDA-Public Use
  Company Number: BR-PFIZER INC-2013304192

PATIENT
  Age: 80 Year
  Sex: Male

DRUGS (1)
  1. VIAGRA [Suspect]
     Dosage: UNK
     Route: 048

REACTIONS (4)
  - Extra dose administered [Unknown]
  - Urinary retention [Not Recovered/Not Resolved]
  - Prostatic disorder [Unknown]
  - Drug ineffective [Unknown]
